FAERS Safety Report 15599747 (Version 5)
Quarter: 2019Q4

REPORT INFORMATION
  Report Type: Spontaneous
  Country: US (occurrence: US)
  Receive Date: 20181108
  Receipt Date: 20191230
  Transmission Date: 20200122
  Serious: No
  Sender: FDA-Public Use
  Company Number: US-ACTELION-A-NJ2018-181118

PATIENT
  Age: 69 Year
  Sex: Female
  Weight: 81.18 kg

DRUGS (5)
  1. ADEMPAS [Concomitant]
     Active Substance: RIOCIGUAT
  2. UPTRAVI [Suspect]
     Active Substance: SELEXIPAG
     Indication: PULMONARY ARTERIAL HYPERTENSION
     Route: 048
  3. UPTRAVI [Suspect]
     Active Substance: SELEXIPAG
     Dosage: 1400 MCG, BID
     Route: 048
  4. OPSUMIT [Suspect]
     Active Substance: MACITENTAN
     Indication: PULMONARY ARTERIAL HYPERTENSION
     Dosage: 10 MG, QD
     Route: 048
  5. WARFARIN [Concomitant]
     Active Substance: WARFARIN

REACTIONS (14)
  - Multiple allergies [Unknown]
  - Pain [Unknown]
  - Crying [Unknown]
  - Unevaluable event [Unknown]
  - Weight decreased [Unknown]
  - Irritability [Unknown]
  - Hordeolum [Unknown]
  - Eye infection [Unknown]
  - Alcohol use [Unknown]
  - Dementia [Unknown]
  - Blood cholesterol increased [Unknown]
  - Pruritus [Not Recovered/Not Resolved]
  - Product dose omission [Unknown]
  - Memory impairment [Unknown]

NARRATIVE: CASE EVENT DATE: 2018
